FAERS Safety Report 7158490-X (Version None)
Quarter: 2010Q4

REPORT INFORMATION
  Report Type: 
  Country: None (occurrence: None)
  Receive Date: 20101214
  Receipt Date: 20100506
  Transmission Date: 20110411
  Serious: No
  Sender: FDA-Public Use
  Company Number: US-ASTRAZENECA-2010SE20975

PATIENT
  Sex: Female
  Weight: 81.6 kg

DRUGS (11)
  1. CRESTOR [Suspect]
     Route: 048
  2. CRESTOR [Suspect]
     Route: 048
  3. LISINOPRIL [Concomitant]
     Indication: HYPERTENSION
  4. ELAVIL [Concomitant]
  5. ZOPENIUM [Concomitant]
     Indication: SLEEP DISORDER
  6. METFORMIN [Concomitant]
  7. CALCIUM [Concomitant]
  8. MAGNESIUM [Concomitant]
  9. GLUCOSAMINE [Concomitant]
  10. CHONDROITIN [Concomitant]
  11. MILK THISTLE [Concomitant]
     Indication: HEPATIC ENZYME

REACTIONS (4)
  - HEPATIC ENZYME INCREASED [None]
  - MUSCLE SPASMS [None]
  - MYALGIA [None]
  - WRONG TECHNIQUE IN DRUG USAGE PROCESS [None]
